FAERS Safety Report 4844812-9 (Version None)
Quarter: 2005Q4

REPORT INFORMATION
  Report Type: 
  Country: None (occurrence: None)
  Receive Date: 20051205
  Receipt Date: 20051123
  Transmission Date: 20060501
  Serious: Yes (Death, Hospitalization)
  Sender: FDA-Public Use
  Company Number: US-JNJFOC-20041105337

PATIENT
  Sex: Female
  Weight: 49.9 kg

DRUGS (5)
  1. DURAGESIC-100 [Suspect]
     Route: 062
  2. DURAGESIC-100 [Suspect]
     Route: 062
  3. DURAGESIC-100 [Suspect]
     Route: 062
  4. MORPHINE ELIXIR [Concomitant]
  5. ATIVAN [Concomitant]

REACTIONS (11)
  - BACK PAIN [None]
  - CARDIAC FAILURE CONGESTIVE [None]
  - CHRONIC OBSTRUCTIVE PULMONARY DISEASE [None]
  - CONFUSIONAL STATE [None]
  - LETHARGY [None]
  - MICROCYTIC ANAEMIA [None]
  - MYOCARDIAL ISCHAEMIA [None]
  - NAUSEA [None]
  - RENAL FAILURE [None]
  - RESPIRATORY FAILURE [None]
  - STUPOR [None]
